FAERS Safety Report 10349437 (Version 8)
Quarter: 2014Q4

REPORT INFORMATION
  Report Type: Spontaneous
  Country: CL (occurrence: CL)
  Receive Date: 20140730
  Receipt Date: 20141023
  Transmission Date: 20150528
  Serious: Yes (Disabling)
  Sender: FDA-Public Use
  Company Number: CL-009507513-1406CHL007760

PATIENT
  Age: 49 Year
  Sex: Female

DRUGS (4)
  1. VICTRELIS [Suspect]
     Active Substance: BOCEPREVIR
     Indication: HEPATITIS C
     Dosage: 2400 MG, DAILY
     Route: 048
     Dates: start: 20140705, end: 20140903
  2. PEGINTRON [Suspect]
     Active Substance: PEGINTERFERON ALFA-2B
     Indication: HEPATITIS C
     Dosage: 150MICROGRAM (150MCG/0.5ML), QM, REDIPEN;
     Route: 058
     Dates: start: 20140602, end: 20140903
  3. REBETOL [Suspect]
     Active Substance: RIBAVIRIN
     Indication: HEPATITIS C
     Dosage: 1200 MG, DAILY
     Route: 048
     Dates: start: 20140602, end: 2014
  4. REBETOL [Suspect]
     Active Substance: RIBAVIRIN
     Dosage: 1000 MG, DAILY
     Route: 048
     Dates: start: 2014, end: 20140903

REACTIONS (44)
  - Mucosal dryness [Unknown]
  - General physical condition abnormal [Unknown]
  - Onychoclasis [Not Recovered/Not Resolved]
  - Oedema peripheral [Unknown]
  - Chills [Recovered/Resolved]
  - Diarrhoea [Unknown]
  - Drug ineffective [Unknown]
  - Blood triglycerides increased [Unknown]
  - Hypoalbuminaemia [Unknown]
  - Pyrexia [Unknown]
  - Decreased appetite [Unknown]
  - Pruritus [Recovered/Resolved]
  - Anaemia [Unknown]
  - Discomfort [Unknown]
  - Affect lability [Unknown]
  - Dry skin [Recovered/Resolved]
  - Headache [Not Recovered/Not Resolved]
  - Dizziness [Not Recovered/Not Resolved]
  - Fatigue [Recovering/Resolving]
  - Sleep disorder [Recovered/Resolved]
  - Eye swelling [Recovered/Resolved]
  - Tachycardia [Unknown]
  - Nausea [Unknown]
  - Thrombocytopenia [Unknown]
  - Balance disorder [Unknown]
  - Discomfort [Unknown]
  - Eye pruritus [Recovered/Resolved]
  - Anxiety [Unknown]
  - Apathy [Recovered/Resolved]
  - Lacrimal disorder [Unknown]
  - Myalgia [Recovered/Resolved]
  - Fatigue [Recovered/Resolved]
  - Alopecia [Not Recovered/Not Resolved]
  - Mood altered [Recovered/Resolved]
  - Gastrooesophageal reflux disease [Unknown]
  - Weight increased [Unknown]
  - Headache [Recovered/Resolved]
  - Insomnia [Recovered/Resolved]
  - Abdominal pain [Unknown]
  - Anxiety [Unknown]
  - Hepatitis C RNA [Unknown]
  - Decreased activity [Recovering/Resolving]
  - Dysgeusia [Unknown]
  - Pyrexia [Unknown]

NARRATIVE: CASE EVENT DATE: 2014
